FAERS Safety Report 5820659-1 (Version None)
Quarter: 2008Q3

REPORT INFORMATION
  Report Type: 
  Country: None (occurrence: None)
  Receive Date: 20080724
  Receipt Date: 20080211
  Transmission Date: 20090109
  Serious: No
  Sender: FDA-Public Use
  Company Number: A0702433A

PATIENT
  Age: 37 Year
  Sex: Female

DRUGS (2)
  1. AVANDIA [Suspect]
     Route: 048
     Dates: start: 20010101, end: 20010101
  2. UNKNOWN [Concomitant]

REACTIONS (1)
  - OEDEMA PERIPHERAL [None]
